FAERS Safety Report 6642607-7 (Version None)
Quarter: 2010Q1

REPORT INFORMATION
  Report Type: 
  Country: None (occurrence: None)
  Receive Date: 20100319
  Receipt Date: 20100315
  Transmission Date: 20100710
  Serious: Yes (Other)
  Sender: FDA-Public Use
  Company Number: JP-SANOFI-AVENTIS-2010SA011289

PATIENT
  Age: 64 Year
  Sex: Female

DRUGS (1)
  1. ALLEGRA [Suspect]
     Indication: URTICARIA
     Route: 048
     Dates: start: 20100223, end: 20100225

REACTIONS (1)
  - GENERALISED OEDEMA [None]
